FAERS Safety Report 19812192 (Version 3)
Quarter: 2022Q1

REPORT INFORMATION
  Report Type: Spontaneous
  Country: US (occurrence: US)
  Receive Date: 20210910
  Receipt Date: 20220325
  Transmission Date: 20220423
  Serious: Yes (Death, Hospitalization, Other)
  Sender: FDA-Public Use
  Company Number: US-SANOFI-00475513

PATIENT
  Age: 67 Year
  Sex: Female

DRUGS (3)
  1. TERIFLUNOMIDE [Suspect]
     Active Substance: TERIFLUNOMIDE
     Dosage: 14 MG, QD
     Route: 048
     Dates: start: 20150209
  2. TERIFLUNOMIDE [Suspect]
     Active Substance: TERIFLUNOMIDE
     Dosage: UNK
     Route: 065
     Dates: start: 20210801, end: 20210801
  3. TERIFLUNOMIDE [Suspect]
     Active Substance: TERIFLUNOMIDE
     Dosage: 14 MG, QD
     Route: 058
     Dates: start: 201501, end: 20210809

REACTIONS (10)
  - Death [Fatal]
  - Pneumonia [Fatal]
  - Septic shock [Fatal]
  - Sepsis [Fatal]
  - Decubitus ulcer [Fatal]
  - Condition aggravated [Unknown]
  - Immobile [Unknown]
  - Wound [Unknown]
  - Infection [Unknown]
  - Respiratory disorder [Unknown]

NARRATIVE: CASE EVENT DATE: 20201101
